FAERS Safety Report 10004365 (Version 1)
Quarter: 2014Q1

REPORT INFORMATION
  Report Type: Spontaneous
  Country: MX (occurrence: MX)
  Receive Date: 20140312
  Receipt Date: 20140312
  Transmission Date: 20141002
  Serious: Yes (Hospitalization, Other)
  Sender: FDA-Public Use
  Company Number: PHHY2013MX155685

PATIENT
  Age: 80 Year
  Sex: Male

DRUGS (1)
  1. EXFORGE [Suspect]
     Dosage: 1 DF (160/5MG) DAILY
     Dates: start: 20131123, end: 20131204

REACTIONS (9)
  - Prostate cancer [Not Recovered/Not Resolved]
  - Haematuria [Recovered/Resolved]
  - Pyrexia [Recovered/Resolved]
  - Prostatic pain [Not Recovered/Not Resolved]
  - Urinary tract infection [Not Recovered/Not Resolved]
  - Insomnia [Not Recovered/Not Resolved]
  - Prostatic obstruction [Unknown]
  - Urinary tract obstruction [Unknown]
  - Hypertension [Unknown]
